FAERS Safety Report 6145140-4 (Version None)
Quarter: 2009Q2

REPORT INFORMATION
  Report Type: 
  Country: None (occurrence: None)
  Receive Date: 20090402
  Receipt Date: 20090402
  Transmission Date: 20091009
  Serious: No
  Sender: FDA-Public Use
  Company Number: None

PATIENT
  Age: 61 Year
  Sex: Female

DRUGS (1)
  1. LEVOTHROID [Suspect]
     Dosage: 125 MCG QAM PO
     Route: 048
     Dates: start: 20080916, end: 20090316

REACTIONS (3)
  - BLOOD PRESSURE INCREASED [None]
  - MARITAL PROBLEM [None]
  - PRODUCT CONTAMINATION [None]
